FAERS Safety Report 8894041 (Version 1)
Quarter: 2012Q4

REPORT INFORMATION
  Report Type: 
  Country: FR (occurrence: FR)
  Receive Date: 20121108
  Receipt Date: 20121108
  Transmission Date: 20130627
  Serious: Yes (Hospitalization)
  Sender: FDA-Public Use
  Company Number: FR-MILLENNIUM PHARMACEUTICALS, INC.-2012-07705

PATIENT

DRUGS (14)
  1. VELCADE [Suspect]
     Indication: MULTIPLE MYELOMA
     Dosage: UNK
     Route: 042
     Dates: start: 201204
  2. MORPHINE SULFATE [Suspect]
     Indication: PAIN
     Dosage: UNK
     Route: 048
     Dates: start: 20120830
  3. LYRICA [Suspect]
     Indication: PAIN
     Dosage: 1 UNK, UNK
     Route: 048
     Dates: start: 20120809, end: 20121005
  4. OXYCODONE [Suspect]
     Indication: PAIN
     Dosage: UNK
     Route: 048
     Dates: start: 201210
  5. PREDNISONE [Concomitant]
     Dosage: 2 mg/kg, UNK
     Dates: start: 201204
  6. ALKERAN [Concomitant]
     Dosage: 0.2 mg/kg, UNK
  7. GLUCOPHAGE                         /00082701/ [Concomitant]
  8. DOLIPRANE [Concomitant]
  9. MOLSIDOMINE [Concomitant]
  10. BISOPROLOL [Concomitant]
  11. PLAVIX                             /01220701/ [Concomitant]
  12. PRAVASTATIN [Concomitant]
  13. BACTRIM [Concomitant]
  14. ZELITREX                           /01269701/ [Concomitant]

REACTIONS (3)
  - Confusional state [Recovering/Resolving]
  - Disorientation [Recovered/Resolved]
  - Fall [Recovered/Resolved]
